FAERS Safety Report 9029689 (Version 2)
Quarter: 2013Q1

REPORT INFORMATION
  Report Type: Spontaneous
  Country: BR (occurrence: BR)
  Receive Date: 20130124
  Receipt Date: 20130206
  Transmission Date: 20140127
  Serious: Yes (Hospitalization)
  Sender: FDA-Public Use
  Company Number: BR-B.I. PHARMACEUTICALS,INC./RIDGEFIELD-2013-BR-00047BR

PATIENT
  Sex: Male

DRUGS (3)
  1. SPIRIVA RESPIMAT [Suspect]
     Indication: EMPHYSEMA
     Route: 055
     Dates: start: 2012
  2. ALENIA [Concomitant]
     Indication: EMPHYSEMA
  3. DUOVENT [Concomitant]
     Indication: EMPHYSEMA

REACTIONS (1)
  - Emphysema [Recovered/Resolved]
